FAERS Safety Report 7533329-9 (Version None)
Quarter: 2011Q2

REPORT INFORMATION
  Report Type: 
  Country: None (occurrence: None)
  Receive Date: 20110608
  Receipt Date: 20040511
  Transmission Date: 20111010
  Serious: Yes (Hospitalization)
  Sender: FDA-Public Use
  Company Number: PHFR2003GB04738

PATIENT
  Sex: Female

DRUGS (2)
  1. PROCYCLIDINE HYDROCHLORIDE 2MG TAB [Concomitant]
     Dosage: 5MG/DAY
  2. CLOZAPINE [Suspect]
     Indication: SCHIZOPHRENIA
     Dosage: 900MG/DAY
     Route: 048
     Dates: start: 19960517

REACTIONS (4)
  - ASTHMA [None]
  - WHEEZING [None]
  - INFECTION [None]
  - BRONCHITIS [None]
